FAERS Safety Report 20041616 (Version 2)
Quarter: 2021Q4

REPORT INFORMATION
  Report Type: Spontaneous
  Country: IT (occurrence: IT)
  Receive Date: 20211108
  Receipt Date: 20211207
  Transmission Date: 20220303
  Serious: Yes (Hospitalization, Other)
  Sender: FDA-Public Use
  Company Number: IT-SA-SAC20211102000487

PATIENT
  Age: 27 Year
  Sex: Female

DRUGS (8)
  1. CAPLACIZUMAB [Suspect]
     Active Substance: CAPLACIZUMAB
     Indication: Thrombotic thrombocytopenic purpura
     Dosage: 1 DF (INJECTION) AT 12:00
     Route: 058
     Dates: start: 20210913, end: 20211018
  2. CAPLACIZUMAB [Suspect]
     Active Substance: CAPLACIZUMAB
     Dosage: UNK
     Route: 058
     Dates: start: 20211029
  3. PREDNISONE [Concomitant]
     Active Substance: PREDNISONE
     Dosage: 2 DF (TABLETS), Q8H
  4. BACTRIM [Concomitant]
     Active Substance: SULFAMETHOXAZOLE\TRIMETHOPRIM
     Dosage: UNK UNK, QOD; 160+800 MG STRENGTH
  5. PANTOPRAZOLE SODIUM [Concomitant]
     Active Substance: PANTOPRAZOLE SODIUM
     Dosage: 1 DF AT 8 AM
  6. METHYLPREDNISOLONE [Concomitant]
     Active Substance: METHYLPREDNISOLONE
     Dosage: 500 MG
  7. PREDNISONE [Concomitant]
     Active Substance: PREDNISONE
     Dosage: 1 MG/KG, QD
  8. RITUXIMAB [Concomitant]
     Active Substance: RITUXIMAB
     Dosage: 375 MG/M2, QW
     Dates: start: 20211103

REACTIONS (10)
  - Thrombotic thrombocytopenic purpura [Unknown]
  - Disease recurrence [Unknown]
  - Hospitalisation [Unknown]
  - Arthralgia [Unknown]
  - Abdominal pain [Unknown]
  - Headache [Unknown]
  - Nausea [Unknown]
  - Spontaneous haematoma [Unknown]
  - Contusion [Unknown]
  - Off label use [Unknown]

NARRATIVE: CASE EVENT DATE: 20211001
